FAERS Safety Report 16884228 (Version 1)
Quarter: 2019Q4

REPORT INFORMATION
  Report Type: Spontaneous
  Country: US (occurrence: US)
  Receive Date: 20191004
  Receipt Date: 20191004
  Transmission Date: 20200122
  Serious: No
  Sender: FDA-Public Use
  Company Number: US-TAKEDA-2019TUS054326

PATIENT
  Age: 75 Year
  Sex: Male

DRUGS (1)
  1. DEXILANT [Suspect]
     Active Substance: DEXLANSOPRAZOLE
     Indication: OESOPHAGEAL DILATATION
     Dosage: UNK, QD
     Route: 065
     Dates: start: 20190926

REACTIONS (2)
  - No adverse event [Unknown]
  - Intercepted product dispensing error [Unknown]
